FAERS Safety Report 5801741-1 (Version None)
Quarter: 2008Q3

REPORT INFORMATION
  Report Type: 
  Country: None (occurrence: None)
  Receive Date: 20080707
  Receipt Date: 20080626
  Transmission Date: 20090109
  Serious: Yes (Hospitalization)
  Sender: FDA-Public Use
  Company Number: D0057621A

PATIENT
  Age: 72 Year
  Sex: Male
  Weight: 90 kg

DRUGS (1)
  1. ADARTREL [Suspect]
     Route: 048
     Dates: start: 20080606, end: 20080606

REACTIONS (5)
  - ACCIDENTAL EXPOSURE [None]
  - ARRHYTHMIA [None]
  - CONFUSIONAL STATE [None]
  - RESTLESSNESS [None]
  - SOPOR [None]
